FAERS Safety Report 23032837 (Version 1)
Quarter: 2023Q4

REPORT INFORMATION
  Report Type: Spontaneous
  Country: US (occurrence: US)
  Receive Date: 20231005
  Receipt Date: 20231005
  Transmission Date: 20240110
  Serious: No
  Sender: FDA-Public Use
  Company Number: US-CORIUM, LLC-2023COR000191

PATIENT

DRUGS (2)
  1. ADLARITY [Suspect]
     Active Substance: DONEPEZIL HYDROCHLORIDE
     Indication: Dementia Alzheimer^s type
     Dosage: 5 MILLIGRAM, QWEEK
     Route: 062
     Dates: start: 20230707
  2. DEVICE [Concomitant]
     Active Substance: DEVICE
     Indication: Adhesive tape use
     Dosage: UNK

REACTIONS (3)
  - Application site irritation [Recovered/Resolved]
  - Product adhesion issue [Unknown]
  - Device malfunction [Unknown]

NARRATIVE: CASE EVENT DATE: 20230101
